FAERS Safety Report 13406556 (Version 2)
Quarter: 2017Q2

REPORT INFORMATION
  Report Type: Spontaneous
  Country: DE (occurrence: DE)
  Receive Date: 20170405
  Receipt Date: 20170417
  Transmission Date: 20170830
  Serious: Yes (Hospitalization)
  Sender: FDA-Public Use
  Company Number: DE-PFIZER INC-2017138482

PATIENT
  Age: 68 Year
  Sex: Male
  Weight: 75 kg

DRUGS (10)
  1. MIRTAZAPIN [Concomitant]
     Active Substance: MIRTAZAPINE
     Dosage: 30 MG, UNK
  2. ASPIRIN. [Concomitant]
     Active Substance: ASPIRIN
     Indication: ATRIAL FIBRILLATION
     Dosage: 100 MG, 1X/DAY (1-0-0) ^LONG TERM MEDICATION^
     Dates: start: 2006
  3. METOPROLOL. [Concomitant]
     Active Substance: METOPROLOL
     Dosage: 50 MG, UNK
     Dates: start: 2006
  4. NOVALGIN [Concomitant]
     Active Substance: METAMIZOLE SODIUM
     Dosage: UNK, AS NEEDED
  5. TAZOBAC [Concomitant]
     Active Substance: PIPERACILLIN SODIUM\TAZOBACTAM SODIUM
     Dosage: 4.5 MG, 3X/DAY (1-1-1)
  6. LYRICA [Suspect]
     Active Substance: PREGABALIN
     Dosage: 500 MG, UNK
  7. BELOC-ZOK MITE [Concomitant]
     Active Substance: METOPROLOL SUCCINATE
     Dosage: 50 MG, 1X/DAY (1-0-0) ^LONG TERM MEDICATION^
     Route: 048
     Dates: start: 2006
  8. PROSTA FINK [Concomitant]
  9. LYRICA [Suspect]
     Active Substance: PREGABALIN
     Indication: NEURALGIA
     Dosage: 75 MG, 3X/DAY (1-1-1)
     Dates: start: 201610
  10. ASPIRIN. [Concomitant]
     Active Substance: ASPIRIN
     Dosage: 100 1X1
     Dates: start: 2013

REACTIONS (5)
  - Confusional state [Recovered/Resolved]
  - Memory impairment [Not Recovered/Not Resolved]
  - Thinking abnormal [Recovered/Resolved]
  - Affective disorder [Recovered/Resolved]
  - Restlessness [Recovered/Resolved]

NARRATIVE: CASE EVENT DATE: 20161016
